FAERS Safety Report 9199994 (Version 1)
Quarter: 2013Q1

REPORT INFORMATION
  Report Type: Spontaneous
  Country: AR (occurrence: AR)
  Receive Date: 20130329
  Receipt Date: 20130329
  Transmission Date: 20140127
  Serious: Yes (Hospitalization)
  Sender: FDA-Public Use
  Company Number: AR-PFIZER INC-2004029584

PATIENT
  Age: 3 Year
  Sex: Female

DRUGS (1)
  1. IBUPROFEN [Suspect]
     Dosage: UNKNOWN DOSE, EVERY 2 HOURS, THEN EVERY 4 HOURS, AND THEN EVERY 6 HOURS
     Route: 048

REACTIONS (2)
  - Overdose [Unknown]
  - Ataxia [Unknown]
